FAERS Safety Report 14106611 (Version 5)
Quarter: 2018Q2

REPORT INFORMATION
  Report Type: Report from Study
  Country: JP (occurrence: JP)
  Receive Date: 20171019
  Receipt Date: 20180627
  Transmission Date: 20180711
  Serious: Yes (Hospitalization)
  Sender: FDA-Public Use
  Company Number: PHJP2017JP031109

PATIENT
  Age: 16 Year
  Sex: Male
  Weight: 28.2 kg

DRUGS (23)
  1. ILARIS [Suspect]
     Active Substance: CANAKINUMAB
     Dosage: 170 MG, 4W
     Route: 058
     Dates: start: 20170426
  2. ILARIS [Suspect]
     Active Substance: CANAKINUMAB
     Dosage: 170 MG, 4W
     Route: 058
     Dates: start: 20171204
  3. ILARIS [Suspect]
     Active Substance: CANAKINUMAB
     Dosage: 170 MG, 4W
     Route: 058
     Dates: start: 20180104
  4. PREDNISOLONE. [Concomitant]
     Active Substance: PREDNISOLONE
     Indication: PHARYNGITIS
     Dosage: 5 MG, UNK
     Route: 065
     Dates: start: 20170429, end: 20171025
  5. ILARIS [Suspect]
     Active Substance: CANAKINUMAB
     Dosage: UNK
     Route: 058
     Dates: start: 20170104, end: 20170330
  6. ILARIS [Suspect]
     Active Substance: CANAKINUMAB
     Dosage: 170 MG, 4W
     Route: 058
     Dates: start: 20170619
  7. ILARIS [Suspect]
     Active Substance: CANAKINUMAB
     Dosage: 170 MG, 4W
     Route: 058
     Dates: start: 20170816
  8. ILARIS [Suspect]
     Active Substance: CANAKINUMAB
     Dosage: 170 MG, 4W
     Route: 058
     Dates: start: 20171011
  9. ILARIS [Suspect]
     Active Substance: CANAKINUMAB
     Dosage: 170 MG, 4W
     Route: 058
     Dates: start: 20170719
  10. ILARIS [Suspect]
     Active Substance: CANAKINUMAB
     Dosage: 170 MG, 4W
     Route: 058
     Dates: start: 20170913
  11. ILARIS [Suspect]
     Active Substance: CANAKINUMAB
     Indication: HYPER IGD SYNDROME
     Dosage: UNK
     Route: 058
     Dates: start: 201205
  12. ILARIS [Suspect]
     Active Substance: CANAKINUMAB
     Dosage: 170 MG, 4W
     Route: 058
     Dates: start: 20171108
  13. PREDNISOLONE. [Concomitant]
     Active Substance: PREDNISOLONE
     Indication: OSTEOPOROSIS
     Dosage: 3 MG, UNK
     Route: 048
  14. PREDNISOLONE. [Concomitant]
     Active Substance: PREDNISOLONE
     Indication: DIARRHOEA
     Dosage: 3 MG, UNK
     Route: 065
  15. PREDNISOLONE. [Concomitant]
     Active Substance: PREDNISOLONE
     Indication: HYPER IGD SYNDROME
     Dosage: 5 MG, UNK
     Route: 065
     Dates: start: 20171201
  16. GLAKAY [Concomitant]
     Active Substance: MENATETRENONE
     Indication: OSTEOPOROSIS
     Dosage: 1 DF, UNK
     Route: 048
  17. ILARIS [Suspect]
     Active Substance: CANAKINUMAB
     Dosage: 170 MG, 4W
     Route: 058
     Dates: start: 20170524
  18. ILARIS [Suspect]
     Active Substance: CANAKINUMAB
     Dosage: 170 MG, 4W
     Route: 058
     Dates: start: 20180131
  19. ILARIS [Suspect]
     Active Substance: CANAKINUMAB
     Dosage: 170 MG, 4W
     Route: 058
     Dates: start: 20180228
  20. ACTEMRA [Concomitant]
     Active Substance: TOCILIZUMAB
     Indication: PRODUCT USED FOR UNKNOWN INDICATION
     Dosage: UNK
     Route: 065
  21. BAKTAR [Concomitant]
     Active Substance: SULFAMETHOXAZOLE\TRIMETHOPRIM
     Indication: PRODUCT USED FOR UNKNOWN INDICATION
     Dosage: 1 G, UNK
     Route: 048
  22. ILARIS [Suspect]
     Active Substance: CANAKINUMAB
     Dosage: 170 MG, 4W
     Route: 058
     Dates: start: 20170331
  23. PREDNISOLONE. [Concomitant]
     Active Substance: PREDNISOLONE
     Dosage: 3 MG, UNK
     Route: 065

REACTIONS (20)
  - Oropharyngeal pain [Recovered/Resolved]
  - Headache [Recovered/Resolved]
  - Headache [Recovered/Resolved]
  - Pharyngeal erythema [Unknown]
  - Pyrexia [Recovered/Resolved]
  - Hyper IgD syndrome [Recovered/Resolved]
  - Diarrhoea [Recovered/Resolved]
  - Pharyngitis [Recovered/Resolved]
  - Fatigue [Unknown]
  - Disease progression [Recovered/Resolved]
  - Back pain [Recovered/Resolved]
  - Diarrhoea [Recovered/Resolved]
  - Hyper IgD syndrome [Recovered/Resolved]
  - Disease progression [Recovered/Resolved]
  - Dysphagia [Unknown]
  - Nasal congestion [Unknown]
  - Oropharyngeal pain [Unknown]
  - Pharyngitis [Recovered/Resolved]
  - Nasal congestion [Recovered/Resolved]
  - Abdominal pain [Recovered/Resolved]

NARRATIVE: CASE EVENT DATE: 20170425
